FAERS Safety Report 8618504-4 (Version None)
Quarter: 2012Q3

REPORT INFORMATION
  Report Type: 
  Country: None (occurrence: None)
  Receive Date: 20120810
  Receipt Date: 20120731
  Transmission Date: 20120928
  Serious: Yes (Hospitalization)
  Sender: FDA-Public Use
  Company Number: UTC-018534

PATIENT
  Age: 54 Year
  Sex: Female
  Weight: 118 kg

DRUGS (1)
  1. REMODULIN [Suspect]
     Indication: PULMONARY ARTERIAL HYPERTENSION
     Dosage: 10.8 UG.KG (0.0075 UG/KG,1 IN 1 MIN),SUBCUTANEOUS
     Route: 058
     Dates: start: 20120423

REACTIONS (5)
  - TRANSIENT ISCHAEMIC ATTACK [None]
  - MENTAL STATUS CHANGES [None]
  - CONFUSIONAL STATE [None]
  - DEVICE ALARM ISSUE [None]
  - DISORIENTATION [None]
